FAERS Safety Report 20649029 (Version 1)
Quarter: 2022Q1

REPORT INFORMATION
  Report Type: Spontaneous
  Country: US (occurrence: None)
  Receive Date: 20220328
  Receipt Date: 20220328
  Transmission Date: 20220423
  Serious: No
  Sender: FDA-Public Use
  Company Number: None

PATIENT
  Age: 24 Year

DRUGS (1)
  1. EVEROLIMUS [Suspect]
     Active Substance: EVEROLIMUS
     Indication: Tuberous sclerosis complex
     Dosage: FREQUENCY : TWICE A DAY;?
     Route: 048
     Dates: start: 201804

REACTIONS (4)
  - Acne [None]
  - Hyperlipidaemia [None]
  - Seizure [None]
  - Stomatitis [None]

NARRATIVE: CASE EVENT DATE: 20220224
